FAERS Safety Report 13268484 (Version 2)
Quarter: 2017Q1

REPORT INFORMATION
  Report Type: Report from Study
  Country: US (occurrence: US)
  Receive Date: 20170224
  Receipt Date: 20170328
  Transmission Date: 20170428
  Serious: Yes (Other)
  Sender: FDA-Public Use
  Company Number: US-GILEAD-2017-0258666

PATIENT
  Age: 58 Year
  Sex: Female

DRUGS (2)
  1. AMBRISENTAN [Suspect]
     Active Substance: AMBRISENTAN
     Indication: PRODUCT USED FOR UNKNOWN INDICATION
     Dosage: 5 MG, QD
     Route: 065
  2. ADCIRCA [Suspect]
     Active Substance: TADALAFIL
     Indication: PRODUCT USED FOR UNKNOWN INDICATION
     Route: 065

REACTIONS (10)
  - Eye pain [Unknown]
  - Ascites [Unknown]
  - Bone pain [Unknown]
  - Depression [Unknown]
  - Confusional state [Unknown]
  - Paranoia [Unknown]
  - Unevaluable event [Unknown]
  - Hepatic enzyme increased [Unknown]
  - Hepatic failure [Not Recovered/Not Resolved]
  - Headache [Unknown]
